FAERS Safety Report 6910158-8 (Version None)
Quarter: 2010Q3

REPORT INFORMATION
  Report Type: 
  Country: None (occurrence: None)
  Receive Date: 20100806
  Receipt Date: 20100729
  Transmission Date: 20110219
  Serious: Yes (Other)
  Sender: FDA-Public Use
  Company Number: US-JNJFOC-20100800981

PATIENT
  Age: 74 Year
  Sex: Male

DRUGS (3)
  1. LEUPROLIDE ACETATE [Suspect]
     Indication: PROSTATE CANCER
     Route: 065
  2. BICALUTAMIDE [Suspect]
     Indication: PROSTATE CANCER
     Route: 065
  3. FINASTERIDE [Suspect]
     Indication: PROSTATE CANCER
     Route: 065

REACTIONS (1)
  - ANDROGEN DEFICIENCY [None]
